FAERS Safety Report 8991366 (Version 1)
Quarter: 2012Q4

REPORT INFORMATION
  Report Type: Report from Study
  Country: FR (occurrence: FR)
  Receive Date: 20121230
  Receipt Date: 20121230
  Transmission Date: 20130627
  Serious: Yes (Other)
  Sender: FDA-Public Use
  Company Number: FR-US-EMD SERONO, INC.-7183283

PATIENT
  Age: 48 Year
  Sex: Female

DRUGS (1)
  1. REBIF [Suspect]
     Indication: MULTIPLE SCLEROSIS
     Dosage: titration period
     Route: 058
     Dates: start: 20121204

REACTIONS (5)
  - Transient ischaemic attack [Unknown]
  - Negative thoughts [Unknown]
  - Migraine [Unknown]
  - Depressive symptom [Unknown]
  - Influenza like illness [Unknown]
